FAERS Safety Report 22346362 (Version 1)
Quarter: 2023Q2

REPORT INFORMATION
  Report Type: Spontaneous
  Country: US (occurrence: US)
  Receive Date: 20230519
  Receipt Date: 20230519
  Transmission Date: 20230721
  Serious: Yes (Other)
  Sender: FDA-Public Use
  Company Number: US-PFIZER INC-PV202300088864

PATIENT
  Age: 76 Year
  Sex: Female
  Weight: 46.3 kg

DRUGS (3)
  1. IBRANCE [Suspect]
     Active Substance: PALBOCICLIB
     Indication: Metastases to liver
     Dosage: 75 MG, CYCLIC (1 TAB PO DAILY FOR 21 DAYS ON AND 7 DAYS OFF )
     Route: 048
     Dates: start: 202208
  2. IBRANCE [Suspect]
     Active Substance: PALBOCICLIB
     Indication: Breast cancer metastatic
  3. ARIMIDEX [Suspect]
     Active Substance: ANASTROZOLE
     Dosage: UNK
     Dates: start: 202208

REACTIONS (7)
  - Parkinson^s disease [Unknown]
  - Condition aggravated [Unknown]
  - Stomatitis [Unknown]
  - Fatigue [Unknown]
  - Decreased appetite [Unknown]
  - Weight decreased [Unknown]
  - Insomnia [Unknown]
